FAERS Safety Report 4981480-X (Version None)
Quarter: 2006Q2

REPORT INFORMATION
  Report Type: 
  Country: None (occurrence: None)
  Receive Date: 20060424
  Receipt Date: 20060106
  Transmission Date: 20061013
  Serious: Yes (Hospitalization)
  Sender: FDA-Public Use
  Company Number: US-MERCK-0601USA01030

PATIENT
  Age: 55 Year
  Sex: Male
  Weight: 82 kg

DRUGS (9)
  1. VIOXX [Suspect]
     Indication: NECK PAIN
     Route: 048
     Dates: start: 20010101, end: 20040101
  2. VIOXX [Suspect]
     Indication: ARTHRALGIA
     Route: 048
     Dates: start: 20010101, end: 20040101
  3. SOMA [Concomitant]
     Route: 065
  4. ZANAFLEX [Concomitant]
     Route: 065
  5. NEXIUM [Concomitant]
     Route: 065
  6. CELEBREX [Concomitant]
     Route: 065
  7. DARVOCET [Concomitant]
     Route: 065
  8. VICODIN [Concomitant]
     Route: 065
  9. HYDROCHLOROTHIAZIDE [Concomitant]
     Route: 065

REACTIONS (4)
  - ARTHROPATHY [None]
  - CARDIAC MURMUR [None]
  - CHEST PAIN [None]
  - GASTRITIS [None]
